FAERS Safety Report 5400588-8 (Version None)
Quarter: 2007Q3

REPORT INFORMATION
  Report Type: 
  Country: None (occurrence: None)
  Receive Date: 20070730
  Receipt Date: 20060713
  Transmission Date: 20080115
  Serious: No
  Sender: FDA-Public Use
  Company Number: A0612180A

PATIENT
  Age: 64 Year
  Sex: Female

DRUGS (2)
  1. ZANTAC 150 [Suspect]
     Dosage: 150MG PER DAY
     Route: 048
  2. SYNTHROID [Concomitant]

REACTIONS (3)
  - AMNESIA [None]
  - CONFUSIONAL STATE [None]
  - PRURITUS [None]
